FAERS Safety Report 10566334 (Version 2)
Quarter: 2014Q4

REPORT INFORMATION
  Report Type: Spontaneous
  Country: US (occurrence: US)
  Receive Date: 20141105
  Receipt Date: 20141125
  Transmission Date: 20150529
  Serious: No
  Sender: FDA-Public Use
  Company Number: US-B.I. PHARMACEUTICALS,INC./RIDGEFIELD-2014-BI-51457BP

PATIENT
  Sex: Male

DRUGS (1)
  1. SPIRIVA [Suspect]
     Active Substance: TIOTROPIUM BROMIDE MONOHYDRATE
     Indication: PRODUCT USED FOR UNKNOWN INDICATION
     Route: 055
     Dates: start: 2013

REACTIONS (8)
  - Drug withdrawal syndrome [Unknown]
  - Product quality issue [Recovered/Resolved]
  - Neck pain [Unknown]
  - Back pain [Unknown]
  - Drug effect decreased [Unknown]
  - Ageusia [Unknown]
  - Skull fracture [Unknown]
  - Fall [Unknown]

NARRATIVE: CASE EVENT DATE: 20141024
